FAERS Safety Report 4925397-5 (Version None)
Quarter: 2006Q1

REPORT INFORMATION
  Report Type: 
  Country: None (occurrence: None)
  Receive Date: 20060228
  Receipt Date: 20050214
  Transmission Date: 20060701
  Serious: No
  Sender: FDA-Public Use
  Company Number: US-GLAXOSMITHKLINE-A0545459A

PATIENT
  Age: 56 Year
  Sex: Female

DRUGS (7)
  1. LAMICTAL [Suspect]
     Indication: BIPOLAR DISORDER
     Dosage: 25MG ALTERNATE DAYS
     Route: 048
     Dates: start: 20050201, end: 20050203
  2. DEPAKOTE [Concomitant]
  3. TOFRANIL [Concomitant]
  4. SEROQUEL [Concomitant]
     Route: 065
  5. ATIVAN [Concomitant]
     Route: 065
  6. ATENOLOL [Concomitant]
  7. PREVACID [Concomitant]

REACTIONS (2)
  - DEPRESSION [None]
  - FATIGUE [None]
